FAERS Safety Report 8339898-3 (Version None)
Quarter: 2012Q2

REPORT INFORMATION
  Report Type: 
  Country: None (occurrence: None)
  Receive Date: 20120507
  Receipt Date: 20120428
  Transmission Date: 20120825
  Serious: Yes (Hospitalization, Other)
  Sender: FDA-Public Use
  Company Number: US-BAYER-2011-040896

PATIENT
  Age: 35 Year
  Sex: Female
  Weight: 84.807 kg

DRUGS (18)
  1. ORPHENADRINE CITRATE [Concomitant]
     Dosage: 100 MG, BID
     Route: 048
     Dates: start: 20070929
  2. IBUPROFEN TABLETS [Concomitant]
     Dosage: 600 MG, UNK
     Route: 048
     Dates: start: 20070929
  3. SYNTHROID [Concomitant]
     Dosage: 125 MCG/24HR, QD
     Dates: start: 20071102
  4. YASMIN [Suspect]
     Dosage: UNK
     Dates: start: 20051114, end: 20070815
  5. CABERGOLINE [Concomitant]
     Dosage: 0.5 MG, OW
     Route: 048
     Dates: start: 20071025
  6. DOSTINEX [Concomitant]
     Dosage: 0.5 MG, OW
     Route: 048
     Dates: start: 20060319
  7. YAZ [Suspect]
     Indication: MENORRHAGIA
     Dosage: UNK
     Dates: end: 20071101
  8. YAZ [Suspect]
     Dosage: UNK
  9. YAZ [Suspect]
     Dosage: UNK
     Dates: start: 20070901, end: 20071102
  10. LEVOTHYROXINE SODIUM [Concomitant]
     Dosage: 112 MCG/24HR, UNK
     Route: 048
     Dates: start: 20071102
  11. FOSAMAX [Concomitant]
     Dosage: UNK
     Dates: start: 20060626
  12. PHENTERMINE [Concomitant]
     Indication: WEIGHT DECREASED
     Dosage: 15 MG, UNK
     Route: 048
     Dates: start: 20071003
  13. PROVENTIL [Concomitant]
     Dosage: 2 PUFFS, AS NEEDED.
     Dates: start: 20071101
  14. YASMIN [Suspect]
     Indication: MENORRHAGIA
     Dosage: UNK
     Dates: start: 20041011, end: 20041110
  15. DOSTINEX [Concomitant]
     Dosage: 0.5 MG, OW
     Route: 048
     Dates: start: 20071102
  16. LEVOTHYROXINE SODIUM [Concomitant]
     Dosage: 112 MCG/24HR, QD
     Route: 048
     Dates: start: 20060427
  17. YASMIN [Suspect]
     Dosage: UNK
     Dates: start: 20071001
  18. POTASSIUM CHLORIDE [Concomitant]
     Dosage: 20 MEQ, UNK
     Route: 048
     Dates: start: 20071003

REACTIONS (12)
  - DIZZINESS [None]
  - PALPITATIONS [None]
  - PAIN IN EXTREMITY [None]
  - ABDOMINAL PAIN UPPER [None]
  - EMOTIONAL DISTRESS [None]
  - DEEP VEIN THROMBOSIS [None]
  - CHOLELITHIASIS [None]
  - INJURY [None]
  - ANXIETY [None]
  - PULMONARY EMBOLISM [None]
  - CHOLECYSTITIS ACUTE [None]
  - DYSPNOEA [None]
